FAERS Safety Report 13855309 (Version 1)
Quarter: 2017Q3

REPORT INFORMATION
  Report Type: Spontaneous
  Country: US (occurrence: US)
  Receive Date: 20170810
  Receipt Date: 20170810
  Transmission Date: 20171127
  Serious: No
  Sender: FDA-Public Use
  Company Number: US-VIFOR (INTERNATIONAL) INC.-VIT-2017-04605

PATIENT
  Age: 86 Year
  Sex: Female
  Weight: 72.55 kg

DRUGS (10)
  1. PROCTO-MED [Concomitant]
  2. HYDROCHLOROTHIAZIDE/LOSARTAN [Concomitant]
  3. GENERLAC [Concomitant]
     Active Substance: LACTULOSE
  4. MEGESTROL [Concomitant]
     Active Substance: MEGESTROL
  5. CLONAZEPAM. [Concomitant]
     Active Substance: CLONAZEPAM
  6. ANALPRAM-HC [Concomitant]
  7. JUVEN REVIGO [Concomitant]
  8. VELTASSA [Suspect]
     Active Substance: PATIROMER
     Indication: HYPERKALAEMIA
     Route: 048
     Dates: start: 20170425
  9. NYSTAT/TRIAM [Concomitant]
  10. CLOTRIM/BETA [Concomitant]

REACTIONS (1)
  - Blood pressure decreased [Unknown]

NARRATIVE: CASE EVENT DATE: 201704
